FAERS Safety Report 8464555-2 (Version None)
Quarter: 2012Q2

REPORT INFORMATION
  Report Type: 
  Country: None (occurrence: None)
  Receive Date: 20120626
  Receipt Date: 20120614
  Transmission Date: 20120825
  Serious: Yes (Hospitalization)
  Sender: FDA-Public Use
  Company Number: FR-BRISTOL-MYERS SQUIBB COMPANY-16691248

PATIENT
  Age: 30 Year
  Sex: Male

DRUGS (7)
  1. ABILIFY [Concomitant]
     Indication: BIPOLAR I DISORDER
     Route: 048
  2. AMITRIPTYLINE HYDROCHLORIDE [Concomitant]
     Dosage: LAROXYL ROCHE
     Route: 048
  3. AMOXICILLIN AND CLAVULANATE POTASSIUM [Concomitant]
     Indication: ESCHAR
     Route: 048
     Dates: start: 20120301
  4. MORPHINE SULFATE [Concomitant]
  5. MORPHINE SULFATE [Concomitant]
  6. COUMADIN [Suspect]
     Indication: FACTOR V LEIDEN MUTATION
     Dosage: SCORED TAB (WARFARIN) 2 MG INT:14JAN12,13APR12 COUMADINE REDUCED DOSAGE AT ONE TAB DAILY
     Route: 048
     Dates: start: 20120210
  7. LIORESAL [Concomitant]
     Route: 037
     Dates: start: 20040101

REACTIONS (4)
  - MALNUTRITION [None]
  - OVERDOSE [None]
  - HAEMORRHAGE [None]
  - INTERNATIONAL NORMALISED RATIO INCREASED [None]
